FAERS Safety Report 7245716-7 (Version None)
Quarter: 2011Q1

REPORT INFORMATION
  Report Type: 
  Country: None (occurrence: None)
  Receive Date: 20110126
  Receipt Date: 20110113
  Transmission Date: 20110831
  Serious: Yes (Hospitalization)
  Sender: FDA-Public Use
  Company Number: US-ACTELION-A-NJ2010-42905

PATIENT

DRUGS (3)
  1. BOSENTAN TABLET UNKNOWN US MG [Suspect]
     Indication: PULMONARY ARTERIAL HYPERTENSION
     Dosage: UNK
     Route: 048
     Dates: start: 20101130
  2. CALCIUM CHANNEL BLOCKERS [Concomitant]
  3. WARFARIN [Concomitant]

REACTIONS (2)
  - SWELLING [None]
  - SYSTEMIC LUPUS ERYTHEMATOSUS [None]
